FAERS Safety Report 16320658 (Version 1)
Quarter: 2019Q2

REPORT INFORMATION
  Report Type: Spontaneous
  Country: GB (occurrence: GB)
  Receive Date: 20190516
  Receipt Date: 20190516
  Transmission Date: 20190711
  Serious: Yes (Other)
  Sender: FDA-Public Use
  Company Number: GB-MYLANLABS-2019M1045650

PATIENT
  Age: 69 Year
  Sex: Female
  Weight: 61 kg

DRUGS (10)
  1. AMLODIPINE [Suspect]
     Active Substance: AMLODIPINE BESYLATE
     Indication: PRODUCT USED FOR UNKNOWN INDICATION
     Dosage: 5 MILLIGRAM, QD
     Dates: start: 20180911
  2. FLUTICASONE. [Concomitant]
     Active Substance: FLUTICASONE
     Dosage: PUFFS
     Route: 055
     Dates: start: 20160426
  3. PARACETAMOL [Concomitant]
     Active Substance: ACETAMINOPHEN
     Dosage: MAXIMUM OF TWO FOUR TIMES A DAY
     Dates: start: 20091116
  4. ALENDRONIC ACID [Concomitant]
     Active Substance: ALENDRONIC ACID
     Dosage: TO BE TAKEN ON THE SAME DAY EACH WEEK
     Dates: start: 20150120
  5. SALAMOL                            /00139502/ [Concomitant]
     Dosage: ONE OR TWO PUFFS UP TO FOUR TIMES
     Route: 055
     Dates: start: 20161011
  6. PIROXICAM. [Concomitant]
     Active Substance: PIROXICAM
     Dosage: AS DIRECTED
     Dates: start: 20110704
  7. ATORVASTATIN [Concomitant]
     Active Substance: ATORVASTATIN
     Dosage: 1 DOSAGE FORM, QD
     Dates: start: 20151027
  8. AMITRIPTYLINE HYDROCHLORIDE. [Concomitant]
     Active Substance: AMITRIPTYLINE HYDROCHLORIDE
     Dosage: AT NIGHT
     Dates: start: 20170123
  9. TIOTROPIUM [Concomitant]
     Active Substance: TIOTROPIUM
     Dosage: PUFFS
     Route: 055
     Dates: start: 20170123
  10. FULTIUM D3 [Concomitant]
     Active Substance: CHOLECALCIFEROL
     Dosage: 1 DOSAGE FORM, QD
     Dates: start: 20150120

REACTIONS (2)
  - Peripheral swelling [Recovered/Resolved with Sequelae]
  - Joint swelling [Unknown]

NARRATIVE: CASE EVENT DATE: 20180921
